FAERS Safety Report 8400795-6 (Version None)
Quarter: 2012Q2

REPORT INFORMATION
  Report Type: 
  Country: None (occurrence: None)
  Receive Date: 20120531
  Receipt Date: 20120525
  Transmission Date: 20120825
  Serious: No
  Sender: FDA-Public Use
  Company Number: US-TEVA-340473USA

PATIENT
  Sex: Male
  Weight: 99.88 kg

DRUGS (1)
  1. COPAXONE [Suspect]
     Indication: MULTIPLE SCLEROSIS
     Route: 058

REACTIONS (2)
  - FREQUENT BOWEL MOVEMENTS [None]
  - GASTROINTESTINAL HYPERMOTILITY [None]
